FAERS Safety Report 18879487 (Version 3)
Quarter: 2021Q1

REPORT INFORMATION
  Report Type: Report from Study
  Country: US (occurrence: US)
  Receive Date: 20210211
  Receipt Date: 20210330
  Transmission Date: 20210420
  Serious: Yes (Hospitalization, Other)
  Sender: FDA-Public Use
  Company Number: US-ASTRAZENECA-2021A023558

PATIENT
  Sex: Female

DRUGS (1)
  1. LYNPARZA [Suspect]
     Active Substance: OLAPARIB
     Indication: OVARIAN CANCER
     Route: 048

REACTIONS (11)
  - Chills [Unknown]
  - Dysstasia [Unknown]
  - Dyspnoea [Unknown]
  - Confusional state [Unknown]
  - Malaise [Unknown]
  - COVID-19 [Unknown]
  - Oxygen saturation decreased [Unknown]
  - Platelet count decreased [Recovered/Resolved]
  - Epistaxis [Unknown]
  - Asthenia [Unknown]
  - Abdominal pain upper [Unknown]
